FAERS Safety Report 7244652-X (Version None)
Quarter: 2011Q1

REPORT INFORMATION
  Report Type: 
  Country: None (occurrence: None)
  Receive Date: 20110125
  Receipt Date: 20110114
  Transmission Date: 20110831
  Serious: Yes (Hospitalization, Other)
  Sender: FDA-Public Use
  Company Number: US-BAXTER-2011BH001745

PATIENT
  Age: 41 Year
  Sex: Female

DRUGS (5)
  1. NAVELBINE [Suspect]
     Indication: METASTASES TO LUNG
     Route: 065
  2. PACLITAXEL [Suspect]
     Indication: BREAST CANCER METASTATIC
     Route: 065
  3. XELODA [Suspect]
     Indication: BREAST CANCER METASTATIC
     Route: 065
  4. CYCLOPHOSPHAMIDE [Suspect]
     Indication: BREAST CANCER METASTATIC
     Route: 065
  5. DOXORUBICIN GENERIC [Suspect]
     Indication: BREAST CANCER METASTATIC
     Route: 065

REACTIONS (10)
  - CONSTIPATION [None]
  - NAUSEA [None]
  - FULL BLOOD COUNT DECREASED [None]
  - VOMITING [None]
  - DIARRHOEA [None]
  - BACK PAIN [None]
  - PYREXIA [None]
  - ORTHOPNOEA [None]
  - SKIN IRRITATION [None]
  - PRODUCTIVE COUGH [None]
